FAERS Safety Report 23024802 (Version 3)
Quarter: 2023Q4

REPORT INFORMATION
  Report Type: Spontaneous
  Country: FR (occurrence: FR)
  Receive Date: 20231004
  Receipt Date: 20231031
  Transmission Date: 20240109
  Serious: Yes (Hospitalization)
  Sender: FDA-Public Use
  Company Number: FR-AFSSAPS-AN2023001223

PATIENT
  Age: 55 Year
  Sex: Male
  Weight: 68 kg

DRUGS (10)
  1. CLOZAPINE [Interacting]
     Active Substance: CLOZAPINE
     Indication: Schizophrenia
     Dosage: 700 MILLIGRAM, ONCE A DAY
     Route: 048
  2. LORMETAZEPAM [Interacting]
     Active Substance: LORMETAZEPAM
     Indication: Sleep disorder
     Dosage: 1 MILLIGRAM, ONCE A DAY
     Route: 048
  3. RISPERIDONE [Interacting]
     Active Substance: RISPERIDONE
     Indication: Schizophrenia
     Dosage: 4 MILLIGRAM, ONCE A DAY
     Route: 048
     Dates: end: 20230903
  4. RISPERIDONE [Interacting]
     Active Substance: RISPERIDONE
     Dosage: 8 MILLIGRAM, ONCE A DAY
     Route: 048
     Dates: start: 20230904
  5. ATROPINE SULFATE [Interacting]
     Active Substance: ATROPINE SULFATE
     Indication: Salivary hypersecretion
     Dosage: 1 GTT DROPS, AS NECESSARY(MORNING AND EVENING IF HYPERSALORRHEA)
     Route: 060
  6. DEPAKOTE [Interacting]
     Active Substance: DIVALPROEX SODIUM
     Indication: Schizophrenia
     Dosage: 1500 MILLIGRAM, ONCE A DAY
     Route: 048
  7. TROPATEPINE HYDROCHLORIDE [Interacting]
     Active Substance: TROPATEPINE HYDROCHLORIDE
     Indication: Parkinsonism
     Dosage: 10 MILLIGRAM, ONCE A DAY
     Route: 048
  8. TERALITHE [Interacting]
     Active Substance: LITHIUM CARBONATE
     Indication: Schizophrenia
     Dosage: 1200 MILLIGRAM, ONCE A DAY
     Route: 048
     Dates: end: 20230830
  9. TERALITHE [Interacting]
     Active Substance: LITHIUM CARBONATE
     Dosage: 800 MILLIGRAM, ONCE A DAY
     Route: 048
     Dates: start: 20230901, end: 20230903
  10. TERALITHE [Interacting]
     Active Substance: LITHIUM CARBONATE
     Dosage: 400 MILLIGRAM, ONCE A DAY
     Route: 048
     Dates: start: 20230904

REACTIONS (3)
  - Extrapyramidal disorder [Recovering/Resolving]
  - Fall [Recovering/Resolving]
  - Drug interaction [Recovered/Resolved]

NARRATIVE: CASE EVENT DATE: 20230821
